FAERS Safety Report 5195701-4 (Version None)
Quarter: 2007Q1

REPORT INFORMATION
  Report Type: 
  Country: None (occurrence: None)
  Receive Date: 20070102
  Receipt Date: 20061222
  Transmission Date: 20070707
  Serious: Yes (Hospitalization, Other)
  Sender: FDA-Public Use
  Company Number: PHEH2006US13650

PATIENT
  Age: 68 Year
  Sex: Male
  Weight: 242 kg

DRUGS (14)
  1. GLEEVEC [Suspect]
     Indication: GASTROINTESTINAL STROMAL TUMOUR
     Dosage: 400 MG, QD
     Route: 048
     Dates: start: 20050913
  2. GLEEVEC [Suspect]
     Dosage: 37.5 MG, UNK
  3. PLAVIX [Concomitant]
  4. VERPAMIL [Concomitant]
  5. ISORDIL [Concomitant]
  6. NU-IRON [Concomitant]
  7. ALDACTONE [Concomitant]
  8. ASPIRIN [Concomitant]
  9. ENTERIC ASPIRIN [Concomitant]
  10. HYDROCHLOROTHIAZIDE [Concomitant]
  11. HYTRIN [Concomitant]
  12. ATIVAN [Concomitant]
  13. COMPAZINE [Concomitant]
  14. ANTICOAGULANTS [Concomitant]

REACTIONS (13)
  - ABDOMINAL DISTENSION [None]
  - BLOOD PRESSURE DECREASED [None]
  - BURNING SENSATION [None]
  - DISEASE RECURRENCE [None]
  - DRUG INEFFECTIVE [None]
  - DYSPNOEA [None]
  - GASTRIC HAEMORRHAGE [None]
  - GASTROINTESTINAL STROMAL TUMOUR [None]
  - HAEMOGLOBIN DECREASED [None]
  - NO THERAPEUTIC RESPONSE [None]
  - PULMONARY EMBOLISM [None]
  - PULMONARY MASS [None]
  - SKIN EXFOLIATION [None]
